FAERS Safety Report 6164884-1 (Version None)
Quarter: 2009Q2

REPORT INFORMATION
  Report Type: 
  Country: None (occurrence: None)
  Receive Date: 20090423
  Receipt Date: 20090416
  Transmission Date: 20091009
  Serious: Yes (Disabling)
  Sender: FDA-Public Use
  Company Number: PHHY2009CA13091

PATIENT
  Sex: Female

DRUGS (4)
  1. ZOMETA [Suspect]
     Indication: BREAST CANCER METASTATIC
     Dosage: 4 MG EVERY 4 WEEKS
     Route: 042
     Dates: start: 20080201
  2. ZOMETA [Suspect]
     Dosage: UNK
     Route: 042
  3. LETROZOLE [Concomitant]
  4. EXEMESTANE [Concomitant]
     Dosage: 25 UNK, QD

REACTIONS (5)
  - EAR PAIN [None]
  - MASTICATION DISORDER [None]
  - PAIN IN JAW [None]
  - TEMPOROMANDIBULAR JOINT SYNDROME [None]
  - TREATMENT NONCOMPLIANCE [None]
